FAERS Safety Report 7906987-4 (Version None)
Quarter: 2011Q4

REPORT INFORMATION
  Report Type: 
  Country: None (occurrence: None)
  Receive Date: 20111110
  Receipt Date: 20111103
  Transmission Date: 20120403
  Serious: Yes (Hospitalization)
  Sender: FDA-Public Use
  Company Number: US-PFIZER INC-2011269421

PATIENT
  Age: 22 Year
  Sex: Female

DRUGS (26)
  1. HYDROCORTISONE [Suspect]
     Indication: LYMPHOCYTIC LEUKAEMIA
     Dosage: 30 MG, UNK
     Dates: start: 20100528
  2. CYTARABINE [Suspect]
     Indication: LYMPHOCYTIC LEUKAEMIA
     Dosage: 60 MG, UNK
     Route: 042
     Dates: start: 20100528
  3. DAUNORUBICIN HYDROCHLORIDE [Suspect]
     Indication: LYMPHOCYTIC LEUKAEMIA
     Route: 042
  4. PEGASPARGASE [Suspect]
     Indication: LYMPHOCYTIC LEUKAEMIA
  5. VINCRISTINE SULFATE [Suspect]
     Indication: LYMPHOCYTIC LEUKAEMIA
     Dosage: 4 MG, UNK
     Route: 042
     Dates: start: 20110617
  6. CYCLOPHOSPHAMIDE [Suspect]
     Dosage: 480 MG (TOTAL DOSE: 2400 MG: 300 MG/M2/DOSE)
     Dates: start: 20110911
  7. ETOPOSIDE [Suspect]
     Dosage: 160 MG (TOTAL DOSE 800 MG: 100 MG/M2/DOSE) ON DAYS 29-33
     Route: 042
     Dates: start: 20110911
  8. PREDNISONE [Suspect]
     Indication: LYMPHOCYTIC LEUKAEMIA
     Dosage: 600 MG, UNK
     Route: 048
     Dates: start: 20110617
  9. PREDNISONE [Suspect]
     Dosage: 30 MG 2X/DAY (20 MG/M2/DOSE) ON DAYS 1-5 AND ON DAYS 29-33 OF MAINTENANCE CYCLE 3
     Route: 048
     Dates: start: 20110911
  10. DASATINIB [Suspect]
     Indication: LYMPHOCYTIC LEUKAEMIA
     Dosage: 1400 MG, UNK
     Route: 048
     Dates: start: 20100528
  11. CYTARABINE [Suspect]
     Dosage: 30 MG  (TOTAL DOSE: 60 MG) GIVEN IT
     Route: 037
     Dates: start: 20110907
  12. MERCAPTOPURINE [Suspect]
     Dosage: 125 MG X 5 DAYS EACH WEEK AND 100 X 2 DAYS EACH WEEK, REPEATED FOR 3 WEEKS TOTAL (DAYS 8-28)
     Dates: start: 20110906
  13. METHOTREXATE SODIUM [Suspect]
     Indication: LYMPHOCYTIC LEUKAEMIA
     Dosage: 8127.5 MG, UNK
     Route: 048
     Dates: start: 20100528
  14. FLAGYL [Suspect]
     Indication: CLOSTRIDIUM DIFFICILE COLITIS
     Dosage: UNK
     Dates: start: 20110618, end: 20110622
  15. DASATINIB [Suspect]
     Dosage: UNK
     Dates: start: 20110617
  16. METHOTREXATE SODIUM [Suspect]
     Dosage: UNK
     Route: 042
     Dates: start: 20110617
  17. DEXAMETHASONE SODIUM PHOSPHATE [Suspect]
     Indication: LYMPHOCYTIC LEUKAEMIA
     Dosage: UNK
     Route: 048
  18. DASATINIB [Suspect]
     Dosage: 100 MG, 1X/DAY (TOTAL DOSE: 1400 MG) QD X 14 DAYS (60 MG/M2/DOSE) ON MAINTENANCE CYCLE 3
     Route: 048
     Dates: start: 20110920
  19. ETOPOSIDE [Suspect]
     Indication: LYMPHOCYTIC LEUKAEMIA
     Dosage: 800 MG, UNK
     Route: 042
     Dates: start: 20100528
  20. HYDROCORTISONE [Suspect]
     Dosage: 15 MG (TOTAL DOSE: 30 MG)
     Dates: start: 20110907
  21. METHOTREXATE SODIUM [Suspect]
     Dosage: 8000 MG (5000 MG/M2/DOSE) GIVEN AS 24 HOUR INFUSION ON DAY 1 AND 15 MG IT ON DAYS 1 AND 29
     Route: 042
     Dates: start: 20110812
  22. DEXAMETHASONE SODIUM PHOSPHATE [Suspect]
     Dosage: 2 MG, ON DAYS 1 AND 29 OF MAINTENANCE CYCLE 3
     Route: 042
     Dates: start: 20110907
  23. CYCLOPHOSPHAMIDE [Suspect]
     Indication: LYMPHOCYTIC LEUKAEMIA
     Dosage: 2400 MG, UNK
     Route: 042
     Dates: start: 20100528
  24. ELSPAR [Suspect]
     Indication: LYMPHOCYTIC LEUKAEMIA
     Route: 030
  25. MERCAPTOPURINE [Suspect]
     Indication: LYMPHOCYTIC LEUKAEMIA
     Dosage: 2475 MG, UNK
     Route: 048
     Dates: start: 20100528
  26. IFOSFAMIDE [Suspect]
     Indication: LYMPHOCYTIC LEUKAEMIA
     Route: 042

REACTIONS (6)
  - HYPERTENSION [None]
  - FLUID RETENTION [None]
  - WHITE BLOOD CELL COUNT DECREASED [None]
  - NEUTROPHIL COUNT DECREASED [None]
  - HEADACHE [None]
  - ENTEROCOLITIS INFECTIOUS [None]
